FAERS Safety Report 4856136-4 (Version None)
Quarter: 2005Q4

REPORT INFORMATION
  Report Type: 
  Country: None (occurrence: None)
  Receive Date: 20051216
  Receipt Date: 20050829
  Transmission Date: 20060501
  Serious: Yes (Hospitalization)
  Sender: FDA-Public Use
  Company Number: US-MERCK-0508USA04789

PATIENT
  Age: 37 Year
  Sex: Female
  Weight: 82 kg

DRUGS (4)
  1. VIOXX [Suspect]
     Indication: ARTHRALGIA
     Route: 048
     Dates: end: 20000101
  2. VIOXX [Suspect]
     Route: 048
     Dates: end: 20000101
  3. VIOXX [Suspect]
     Indication: BACK PAIN
     Route: 048
     Dates: end: 20000101
  4. VIOXX [Suspect]
     Route: 048
     Dates: end: 20000101

REACTIONS (10)
  - ADVERSE EVENT [None]
  - BLADDER DISORDER [None]
  - CHEST PAIN [None]
  - HEADACHE [None]
  - HYPOAESTHESIA [None]
  - INFLUENZA [None]
  - JOINT INJURY [None]
  - MASS [None]
  - PLEURISY [None]
  - TRANSIENT ISCHAEMIC ATTACK [None]
